FAERS Safety Report 6716102-0 (Version None)
Quarter: 2010Q2

REPORT INFORMATION
  Report Type: 
  Country: None (occurrence: None)
  Receive Date: 20100507
  Receipt Date: 20100428
  Transmission Date: 20101027
  Serious: Yes (Hospitalization)
  Sender: FDA-Public Use
  Company Number: B0651669A

PATIENT
  Age: 32 Year
  Sex: Male

DRUGS (7)
  1. BUPROPION HCL [Suspect]
  2. QUETIAPINE [Suspect]
  3. LEVOTHYROXINE SODIUM [Suspect]
  4. VERAPAMIL RETARD [Suspect]
  5. ZOLPIDEM [Suspect]
  6. CLONAZEPAM [Suspect]
  7. BENAZEPRIL HYDROCHLORIDE [Suspect]

REACTIONS (11)
  - BLOOD CREATININE INCREASED [None]
  - BLOOD LACTIC ACID INCREASED [None]
  - CARDIOVASCULAR INSUFFICIENCY [None]
  - CREPITATIONS [None]
  - DEPRESSED LEVEL OF CONSCIOUSNESS [None]
  - ILL-DEFINED DISORDER [None]
  - INTENTIONAL OVERDOSE [None]
  - METABOLIC ACIDOSIS [None]
  - PULMONARY OEDEMA [None]
  - RESPIRATORY FAILURE [None]
  - SUICIDE ATTEMPT [None]
